FAERS Safety Report 9992449 (Version 3)
Quarter: 2014Q2

REPORT INFORMATION
  Report Type: Report from Study
  Country: JP (occurrence: JP)
  Receive Date: 20140310
  Receipt Date: 20140516
  Transmission Date: 20141212
  Serious: Yes (Hospitalization)
  Sender: FDA-Public Use
  Company Number: JP-GLAXOSMITHKLINE-B0974952A

PATIENT
  Age: 41 Year
  Sex: Female

DRUGS (6)
  1. VOTRIENT 200MG [Suspect]
     Indication: EXTRASKELETAL MYXOID CHONDROSARCOMA
     Dosage: 800MG PER DAY
     Route: 048
     Dates: start: 20121213, end: 20121227
  2. VOTRIENT 200MG [Suspect]
     Indication: EXTRASKELETAL MYXOID CHONDROSARCOMA
     Dosage: 600MG PER DAY
     Route: 048
     Dates: start: 20121227, end: 20130124
  3. VOTRIENT 200MG [Suspect]
     Indication: EXTRASKELETAL MYXOID CHONDROSARCOMA
     Dosage: 400MG PER DAY
     Route: 048
     Dates: start: 20130131, end: 20130221
  4. CHINESE MEDICINE [Concomitant]
     Dosage: 1IUAX THREE TIMES PER DAY
     Route: 048
  5. LYRICA [Concomitant]
     Indication: EXTRASKELETAL MYXOID CHONDROSARCOMA
     Dosage: 62.5MG TWICE PER DAY
     Route: 048
  6. FENTOS [Concomitant]
     Indication: EXTRASKELETAL MYXOID CHONDROSARCOMA
     Route: 062

REACTIONS (6)
  - Anal ulcer [Not Recovered/Not Resolved]
  - Palmar-plantar erythrodysaesthesia syndrome [Not Recovered/Not Resolved]
  - Somnolence [Recovered/Resolved]
  - Hypertension [Not Recovered/Not Resolved]
  - Nausea [Recovered/Resolved]
  - Hair colour changes [Not Recovered/Not Resolved]
